FAERS Safety Report 15649821 (Version 1)
Quarter: 2018Q4

REPORT INFORMATION
  Report Type: Spontaneous
  Country: AU (occurrence: AU)
  Receive Date: 20181123
  Receipt Date: 20181123
  Transmission Date: 20190205
  Serious: Yes (Other)
  Sender: FDA-Public Use
  Company Number: PHHY2018AU161982

PATIENT
  Age: 65 Year
  Sex: Female

DRUGS (1)
  1. ZYKADIA [Suspect]
     Active Substance: CERITINIB
     Indication: LUNG CANCER METASTATIC
     Route: 065

REACTIONS (4)
  - Malignant neoplasm progression [Unknown]
  - Hepatic failure [Unknown]
  - Lung cancer metastatic [Unknown]
  - Diarrhoea [Unknown]
